FAERS Safety Report 4686598-7 (Version None)
Quarter: 2005Q2

REPORT INFORMATION
  Report Type: 
  Country: None (occurrence: None)
  Receive Date: 20050609
  Receipt Date: 20050505
  Transmission Date: 20051028
  Serious: Yes (Hospitalization)
  Sender: FDA-Public Use
  Company Number: DE-BRISTOL-MYERS SQUIBB COMPANY-12958153

PATIENT
  Age: 44 Year
  Sex: Female
  Weight: 64 kg

DRUGS (3)
  1. CARBOPLATIN [Suspect]
     Indication: CERVIX CARCINOMA
     Dosage: AUC=6
     Route: 042
     Dates: start: 20041008, end: 20041008
  2. CAELYX [Suspect]
     Indication: CERVIX CARCINOMA
     Route: 042
     Dates: start: 20041008, end: 20041008
  3. INFLUENZA VACCINE [Concomitant]
     Dates: start: 20041001, end: 20041001

REACTIONS (4)
  - FATIGUE [None]
  - GASTRITIS [None]
  - LYMPHOCELE [None]
  - SEROMA [None]
